FAERS Safety Report 22105315 (Version 1)
Quarter: 2023Q1

REPORT INFORMATION
  Report Type: Spontaneous
  Country: US (occurrence: US)
  Receive Date: 20230317
  Receipt Date: 20230317
  Transmission Date: 20230418
  Serious: No
  Sender: FDA-Public Use
  Company Number: US-ENDO PHARMACEUTICALS INC-2022-006204

PATIENT
  Sex: Male
  Weight: 92.971 kg

DRUGS (2)
  1. XIAFLEX [Suspect]
     Active Substance: COLLAGENASE CLOSTRIDIUM HISTOLYTICUM
     Indication: Dupuytren^s contracture
     Dosage: 0.58 MG, UNKNOWN (FIRST TREATMENT)
     Route: 051
     Dates: start: 20221014
  2. XIAFLEX [Suspect]
     Active Substance: COLLAGENASE CLOSTRIDIUM HISTOLYTICUM
     Dosage: 0.58 MG, UNKNOWN (SECOND TREATMENT)
     Route: 051
     Dates: start: 20221116

REACTIONS (3)
  - Drug ineffective [Not Recovered/Not Resolved]
  - Product storage error [Unknown]
  - Suspected product quality issue [Unknown]

NARRATIVE: CASE EVENT DATE: 20220101
